FAERS Safety Report 15453425 (Version 3)
Quarter: 2019Q3

REPORT INFORMATION
  Report Type: Report from Study
  Country: US (occurrence: US)
  Receive Date: 20181001
  Receipt Date: 20190921
  Transmission Date: 20191004
  Serious: No
  Sender: FDA-Public Use
  Company Number: PHEH2018US040228

PATIENT
  Sex: Female

DRUGS (1)
  1. ENTRESTO [Suspect]
     Active Substance: SACUBITRIL\VALSARTAN
     Indication: CARDIAC FAILURE
     Dosage: UNK UNK, BID
     Route: 048

REACTIONS (5)
  - Fall [Unknown]
  - Depressed mood [Unknown]
  - Back pain [Unknown]
  - Limb discomfort [Unknown]
  - Musculoskeletal discomfort [Unknown]
